FAERS Safety Report 7197286-X (Version None)
Quarter: 2010Q4

REPORT INFORMATION
  Report Type: 
  Country: None (occurrence: None)
  Receive Date: 20101226
  Receipt Date: 20101216
  Transmission Date: 20110411
  Serious: Yes (Hospitalization)
  Sender: FDA-Public Use
  Company Number: ES-BRISTOL-MYERS SQUIBB COMPANY-15240757

PATIENT
  Age: 51 Year
  Sex: Male
  Weight: 69 kg

DRUGS (3)
  1. CETUXIMAB [Suspect]
     Indication: GASTROOESOPHAGEAL CANCER
     Dosage: STRENGTH: 5MG/ML REC INF:29JUL10,2ND INF:05AUG10
     Route: 042
     Dates: start: 20100722, end: 20100729
  2. CISPLATIN [Suspect]
     Indication: GASTROOESOPHAGEAL CANCER
     Dosage: DAY 1 OF CYCLE REC INF: 22JUL10
     Route: 042
     Dates: start: 20100722, end: 20100722
  3. XELODA [Suspect]
     Indication: GASTROOESOPHAGEAL CANCER
     Dosage: DAY 1-15 REC INF:29JUL10,05AUG10,TAB.
     Route: 048
     Dates: start: 20100722, end: 20100805

REACTIONS (4)
  - ACUTE PRERENAL FAILURE [None]
  - DIARRHOEA [None]
  - PERIPHERAL ISCHAEMIA [None]
  - VOMITING [None]
